FAERS Safety Report 7671103-3 (Version None)
Quarter: 2011Q3

REPORT INFORMATION
  Report Type: 
  Country: None (occurrence: None)
  Receive Date: 20110808
  Receipt Date: 20110808
  Transmission Date: 20111222
  Serious: No
  Sender: FDA-Public Use
  Company Number: None

PATIENT
  Sex: Female
  Weight: 63.3 kg

DRUGS (3)
  1. CYCLOPHOSPHAMIDE [Suspect]
     Dosage: 340 MG
     Dates: end: 20110504
  2. RITUXIMAB (MOAB C2B8 ANTI CD20, CHIMERIC) [Suspect]
     Dosage: 850 MG
     Dates: end: 20110502
  3. FLUDARABINE PHOSPHATE [Suspect]
     Dosage: 30 MG
     Dates: end: 20110505

REACTIONS (4)
  - VIRAL INFECTION [None]
  - MALAISE [None]
  - FATIGUE [None]
  - NEUTROPENIA [None]
